FAERS Safety Report 7970329-9 (Version None)
Quarter: 2011Q4

REPORT INFORMATION
  Report Type: 
  Country: None (occurrence: None)
  Receive Date: 20111212
  Receipt Date: 20111201
  Transmission Date: 20120403
  Serious: Yes (Hospitalization, Other)
  Sender: FDA-Public Use
  Company Number: US-BAYER-2011-010999

PATIENT
  Age: 23 Year
  Sex: Female
  Weight: 72.562 kg

DRUGS (8)
  1. METFORMIN HCL [Concomitant]
     Indication: POLYCYSTIC OVARIES
     Dosage: UNK
     Route: 048
     Dates: start: 20040101
  2. CIPROFLOXACIN [Concomitant]
     Dosage: 400 MG, BID
     Dates: start: 20081201
  3. FLAGYL [Concomitant]
     Dosage: 500 MG, UNK
     Dates: start: 20081201
  4. YASMIN [Suspect]
     Indication: CONTRACEPTION
     Dosage: UNK
     Dates: start: 20070201, end: 20080601
  5. APHTHASOL [Concomitant]
     Dosage: UNK
     Route: 061
     Dates: start: 20081104
  6. TERBINAFINE HCL [Concomitant]
     Dosage: 250 MG, CONT
     Route: 048
     Dates: start: 20081104
  7. YAZ [Suspect]
     Indication: CONTRACEPTION
     Dosage: UNK
     Dates: start: 20080615, end: 20090601
  8. LIDOCAINE HCL VISCOUS [Concomitant]
     Dosage: UNK
     Dates: start: 20081104

REACTIONS (12)
  - ABDOMINAL PAIN [None]
  - GASTROINTESTINAL DISORDER [None]
  - CHOLECYSTITIS ACUTE [None]
  - VOMITING [None]
  - URINARY TRACT INFECTION [None]
  - WEIGHT GAIN POOR [None]
  - KIDNEY INFECTION [None]
  - STRESS [None]
  - PREGNANCY ON ORAL CONTRACEPTIVE [None]
  - PAIN [None]
  - WEIGHT DECREASED [None]
  - GALLBLADDER DISORDER [None]
